FAERS Safety Report 7561427-2 (Version None)
Quarter: 2011Q2

REPORT INFORMATION
  Report Type: 
  Country: None (occurrence: None)
  Receive Date: 20110621
  Receipt Date: 20100505
  Transmission Date: 20111010
  Serious: Yes (Other)
  Sender: FDA-Public Use
  Company Number: US-ASTRAZENECA-2010SE20376

PATIENT
  Age: 59 Year
  Sex: Male
  Weight: 63.5 kg

DRUGS (4)
  1. PULMICORT [Suspect]
     Indication: PNEUMONIA
     Route: 055
     Dates: start: 20100401, end: 20100401
  2. PULMICORT [Suspect]
     Indication: ASTHMA
     Route: 055
     Dates: start: 20100401, end: 20100401
  3. HIGH BLOOD PRESSURE MEDICATIONS [Concomitant]
  4. AEROSOL BOTTLES [Concomitant]

REACTIONS (3)
  - DYSPNOEA [None]
  - ANAPHYLACTIC REACTION [None]
  - DIARRHOEA [None]
